FAERS Safety Report 16684173 (Version 2)
Quarter: 2019Q4

REPORT INFORMATION
  Report Type: Spontaneous
  Country: JP (occurrence: JP)
  Receive Date: 20190808
  Receipt Date: 20191111
  Transmission Date: 20200122
  Serious: Yes (Death, Other)
  Sender: FDA-Public Use
  Company Number: JP-JNJFOC-20190804791

PATIENT
  Age: 75 Year
  Sex: Female

DRUGS (7)
  1. TANATRIL [Concomitant]
     Active Substance: IMIDAPRIL
     Route: 048
  2. PREDNISOLONE. [Suspect]
     Active Substance: PREDNISOLONE
     Indication: PRODUCT USED FOR UNKNOWN INDICATION
     Route: 048
     Dates: start: 20190705, end: 20190716
  3. TERNELIN [Concomitant]
     Active Substance: TIZANIDINE
     Indication: MULTIPLE SYSTEM ATROPHY
     Route: 048
  4. ONEALFA [Concomitant]
     Active Substance: ALFACALCIDOL
     Indication: OSTEOPOROSIS
     Route: 048
  5. BASEN                              /01290601/ [Concomitant]
     Active Substance: VOGLIBOSE
     Indication: DIABETES MELLITUS
     Route: 048
  6. TREMFYA [Suspect]
     Active Substance: GUSELKUMAB
     Indication: PSORIASIS
     Dosage: GUSELKUMAB (GENETICAL RECOMBINATION):100MG
     Route: 058
     Dates: start: 20190620, end: 20190703
  7. SERMION                            /00396401/ [Concomitant]
     Active Substance: NICERGOLINE
     Indication: MULTIPLE SYSTEM ATROPHY
     Route: 048

REACTIONS (4)
  - Perinephric abscess [Fatal]
  - Interstitial lung disease [Fatal]
  - Intestinal perforation [Fatal]
  - Septic shock [Fatal]

NARRATIVE: CASE EVENT DATE: 201906
